FAERS Safety Report 5928661-6 (Version None)
Quarter: 2008Q4

REPORT INFORMATION
  Report Type: 
  Country: None (occurrence: None)
  Receive Date: 20081023
  Receipt Date: 20081015
  Transmission Date: 20090506
  Serious: No
  Sender: FDA-Public Use
  Company Number: US-B.I. PHARMACEUTICALS,INC./RIDGEFIELD-2008-BP-15932BP

PATIENT
  Sex: Female

DRUGS (6)
  1. SPIRIVA [Suspect]
     Indication: CHRONIC OBSTRUCTIVE PULMONARY DISEASE
     Dosage: 18MCG
     Route: 055
     Dates: start: 20080517, end: 20081015
  2. NEBULIZERS [Concomitant]
     Indication: DYSPNOEA
  3. SYMBICORT [Concomitant]
  4. NIACALCIUM [Concomitant]
     Dates: start: 20070901
  5. PROTONIX [Concomitant]
  6. UNSPECIFIED MEDICATION [Concomitant]
     Indication: UNEVALUABLE EVENT
     Dates: end: 20080901

REACTIONS (4)
  - ANURIA [None]
  - BLADDER PROLAPSE [None]
  - CONSTIPATION [None]
  - DRUG INEFFECTIVE [None]
